FAERS Safety Report 5358947-8 (Version None)
Quarter: 2007Q2

REPORT INFORMATION
  Report Type: 
  Country: None (occurrence: None)
  Receive Date: 20070615
  Receipt Date: 20070611
  Transmission Date: 20071010
  Serious: Yes (Other)
  Sender: FDA-Public Use
  Company Number: D0053562A

PATIENT
  Age: 61 Year
  Sex: Female

DRUGS (1)
  1. TAGONIS [Suspect]
     Dosage: 20MG IN THE MORNING
     Route: 048

REACTIONS (1)
  - SINUS BRADYCARDIA [None]
